FAERS Safety Report 18703033 (Version 1)
Quarter: 2021Q1

REPORT INFORMATION
  Report Type: Spontaneous
  Country: US (occurrence: US)
  Receive Date: 20210105
  Receipt Date: 20210105
  Transmission Date: 20210419
  Serious: Yes (Other)
  Sender: FDA-Public Use
  Company Number: US-ASTRAZENECA-2021A000492

PATIENT
  Age: 54 Year
  Sex: Female
  Weight: 127 kg

DRUGS (11)
  1. NEXIUM [Suspect]
     Active Substance: ESOMEPRAZOLE MAGNESIUM
     Indication: GASTROOESOPHAGEAL REFLUX DISEASE
     Dosage: 40.0MG AS REQUIRED
     Route: 048
     Dates: start: 2013
  2. SPIRIVA RESPIMAT [Concomitant]
     Active Substance: TIOTROPIUM BROMIDE
     Indication: ASTHMA
     Route: 055
  3. METOLAZONE. [Concomitant]
     Active Substance: METOLAZONE
     Indication: LYMPHOEDEMA
     Dosage: 3 OR MORE TIMES PER WEEK, UNKNOWN DOSE AND UNIT.
     Route: 048
     Dates: start: 2017
  4. PENICILLIN [Concomitant]
     Active Substance: PENICILLIN
     Indication: STREPTOCOCCAL SEPSIS
     Dosage: DOSE, UNIT UNKNOWN TWO TIMES A DAY
     Route: 048
     Dates: start: 2015
  5. VITAMIN D [Concomitant]
     Active Substance: VITAMIN D NOS
     Indication: VITAMIN D DEFICIENCY
     Dosage: 50000 IU TWICE A WEEK
     Route: 048
     Dates: start: 2010
  6. PROAIR HFA [Concomitant]
     Active Substance: ALBUTEROL SULFATE
     Indication: ASTHMA
     Dosage: UNKNOWN DOSE, UNIT AS REQUIRED
     Route: 055
  7. GLIPIZIDE. [Concomitant]
     Active Substance: GLIPIZIDE
     Indication: TYPE 2 DIABETES MELLITUS
     Dosage: MEDICATION NOT AVAILABLE TO SEE THE DOSE BUT PATIENT BELIEVES IT IS 20 MG DAILY
     Route: 048
     Dates: start: 2020
  8. DULERA [Concomitant]
     Active Substance: FORMOTEROL FUMARATE DIHYDRATE\MOMETASONE FUROATE
     Indication: ASTHMA
     Dosage: 200MCG/5 MCG FOUR TIMES A DAY
     Route: 055
  9. SPIRONOLACTONE. [Concomitant]
     Active Substance: SPIRONOLACTONE
     Indication: LYMPHOEDEMA
     Dosage: UNKNOWN DOSE AND UNIT DAILY
     Route: 048
     Dates: start: 2017
  10. POTASSIUM [Concomitant]
     Active Substance: POTASSIUM
     Indication: ADVERSE DRUG REACTION
     Dosage: 2 DAILY, 3 WHEN TAKING METOLAZONE. UNKNOWN DOSE AND UNIT
     Route: 048
  11. HUMALOG [Concomitant]
     Active Substance: INSULIN LISPRO
     Indication: TYPE 2 DIABETES MELLITUS
     Dosage: 135 UNITS WITH EACH MEAL
     Route: 058

REACTIONS (1)
  - Septic shock [Recovered/Resolved]

NARRATIVE: CASE EVENT DATE: 2015
